FAERS Safety Report 9990266 (Version 1)
Quarter: 2014Q1

REPORT INFORMATION
  Report Type: Report from Study
  Country: US (occurrence: US)
  Receive Date: 20140310
  Receipt Date: 20140310
  Transmission Date: 20141002
  Serious: No
  Sender: FDA-Public Use
  Company Number: US-ABBVIE-13P-163-1130981-00

PATIENT
  Sex: Female

DRUGS (4)
  1. HUMIRA [Suspect]
     Indication: PSORIASIS
  2. ORTHO EVRA [Concomitant]
     Indication: CONTRACEPTION
  3. CHANTIX [Concomitant]
     Indication: PRODUCT USED FOR UNKNOWN INDICATION
  4. VALERIAN ROOT [Concomitant]
     Indication: ANXIETY

REACTIONS (3)
  - Hypersensitivity [Not Recovered/Not Resolved]
  - Injection site pain [Not Recovered/Not Resolved]
  - Injection site bruising [Not Recovered/Not Resolved]
